FAERS Safety Report 23089603 (Version 2)
Quarter: 2023Q4

REPORT INFORMATION
  Report Type: Spontaneous
  Country: US (occurrence: None)
  Receive Date: 20231020
  Receipt Date: 20231211
  Transmission Date: 20240110
  Serious: Yes (Other)
  Sender: FDA-Public Use
  Company Number: 2023A238756

PATIENT
  Sex: Female

DRUGS (1)
  1. SAPHNELO [Suspect]
     Active Substance: ANIFROLUMAB-FNIA
     Route: 042

REACTIONS (5)
  - Breast discolouration [Unknown]
  - Oedema peripheral [Unknown]
  - Illness [Unknown]
  - Blister [Unknown]
  - Inappropriate schedule of product administration [Unknown]
